FAERS Safety Report 6911786-6 (Version None)
Quarter: 2010Q3

REPORT INFORMATION
  Report Type: 
  Country: None (occurrence: None)
  Receive Date: 20100806
  Receipt Date: 20080401
  Transmission Date: 20110219
  Serious: No
  Sender: FDA-Public Use
  Company Number: US-PFIZER INC-2007057134

PATIENT
  Sex: Female

DRUGS (2)
  1. DETROL [Suspect]
  2. LESCOL XL [Concomitant]

REACTIONS (2)
  - DRUG INEFFECTIVE [None]
  - NOCTURIA [None]
